FAERS Safety Report 21022050 (Version 1)
Quarter: 2022Q2

REPORT INFORMATION
  Report Type: Spontaneous
  Country: US (occurrence: None)
  Receive Date: 20220628
  Receipt Date: 20220628
  Transmission Date: 20220721
  Serious: Yes (unspecified)
  Sender: FDA-Public Use
  Company Number: None

PATIENT
  Age: 49 Year
  Sex: Female
  Weight: 77.85 kg

DRUGS (3)
  1. PAXLOVID [Suspect]
     Active Substance: NIRMATRELVIR\RITONAVIR
     Indication: SARS-CoV-2 test positive
     Dates: start: 20220622, end: 20220624
  2. Xyzal 10mg daily [Concomitant]
  3. vitamin D3 5000 IU daily [Concomitant]

REACTIONS (9)
  - Rash [None]
  - Chest pain [None]
  - Fatigue [None]
  - Dyspnoea [None]
  - Abdominal pain upper [None]
  - Faeces discoloured [None]
  - Hypertension [None]
  - Headache [None]
  - Fatigue [None]

NARRATIVE: CASE EVENT DATE: 20220624
